FAERS Safety Report 23078357 (Version 4)
Quarter: 2023Q4

REPORT INFORMATION
  Report Type: Spontaneous
  Country: GR (occurrence: GR)
  Receive Date: 20231018
  Receipt Date: 20231117
  Transmission Date: 20240109
  Serious: No
  Sender: FDA-Public Use
  Company Number: GR-PFIZER INC-PV202300160643

PATIENT
  Age: 13 Year
  Sex: Male
  Weight: 50 kg

DRUGS (2)
  1. GENOTROPIN [Suspect]
     Active Substance: SOMATROPIN
     Indication: Dwarfism
     Dosage: 1 MG, DAILY (1 DAY OFF EVERY 2ND WEEK), 12 MG PEN
     Route: 058
     Dates: start: 202307
  2. GENOTROPIN [Suspect]
     Active Substance: SOMATROPIN
     Dosage: UNK

REACTIONS (1)
  - Device defective [Recovered/Resolved]
